FAERS Safety Report 6664012-X (Version None)
Quarter: 2010Q2

REPORT INFORMATION
  Report Type: 
  Country: None (occurrence: None)
  Receive Date: 20100401
  Receipt Date: 20100323
  Transmission Date: 20101027
  Serious: Yes (Hospitalization)
  Sender: FDA-Public Use
  Company Number: IT-JNJFOC-20100307048

PATIENT
  Sex: Male

DRUGS (3)
  1. INTELENCE [Suspect]
     Indication: HIV INFECTION
     Route: 065
     Dates: start: 20100104
  2. PREZISTA [Suspect]
     Indication: HIV INFECTION
     Route: 065
     Dates: start: 20100205
  3. NORVIR [Concomitant]
     Indication: HIV INFECTION
     Route: 065

REACTIONS (2)
  - HEPATITIS CHOLESTATIC [None]
  - RASH [None]
